FAERS Safety Report 24787501 (Version 1)
Quarter: 2024Q4

REPORT INFORMATION
  Report Type: Spontaneous
  Country: US (occurrence: US)
  Receive Date: 20241230
  Receipt Date: 20241230
  Transmission Date: 20250115
  Serious: Yes (Life-Threatening, Hospitalization, Other)
  Sender: AUROBINDO
  Company Number: US-MLMSERVICE-20241213-PI287908-00117-2

PATIENT
  Age: 52 Year
  Sex: Male

DRUGS (2)
  1. DEXAMETHASONE [Suspect]
     Active Substance: DEXAMETHASONE
     Indication: Metastases to central nervous system
     Dosage: 4 MG 3 TIMES DAILY BY MOUTH WITH THE POTENTIAL TO DECREASE TO 2 TIMES DAILY PENDING CLINICAL RESPONS
     Route: 048
  2. DEXAMETHASONE [Suspect]
     Active Substance: DEXAMETHASONE
     Dosage: 4 MG 3 TIMES DAILY BY MOUTH WITH THE POTENTIAL TO DECREASE TO 2 TIMES DAILY PENDING CLINICAL RESPONS
     Route: 048

REACTIONS (3)
  - Listeriosis [Unknown]
  - Brain abscess [Unknown]
  - Hydrocephalus [Unknown]
